FAERS Safety Report 9487306 (Version 2)
Quarter: 2013Q3

REPORT INFORMATION
  Report Type: Spontaneous
  Country: US (occurrence: US)
  Receive Date: 20130829
  Receipt Date: 20130909
  Transmission Date: 20140515
  Serious: Yes (Hospitalization)
  Sender: FDA-Public Use
  Company Number: US-BAXTER-2013BAX033707

PATIENT
  Age: 66 Year
  Sex: Female

DRUGS (4)
  1. DIANEAL LOW CALCIUM [Suspect]
     Indication: PERITONEAL DIALYSIS
     Route: 033
     Dates: end: 20130821
  2. DIANEAL LOW CALCIUM [Suspect]
     Route: 033
     Dates: start: 20130829
  3. DIANEAL LOW CALCIUM [Suspect]
     Indication: PERITONEAL DIALYSIS
     Route: 033
     Dates: end: 20130821
  4. DIANEAL LOW CALCIUM [Suspect]
     Route: 033
     Dates: start: 20130829

REACTIONS (1)
  - Peritonitis bacterial [Recovered/Resolved]
